FAERS Safety Report 6825855-2 (Version None)
Quarter: 2010Q3

REPORT INFORMATION
  Report Type: 
  Country: None (occurrence: None)
  Receive Date: 20100707
  Receipt Date: 20100707
  Transmission Date: 20110219
  Serious: No
  Sender: FDA-Public Use
  Company Number: None

PATIENT
  Age: 79 Year
  Sex: Female
  Weight: 61.2356 kg

DRUGS (1)
  1. AMBIEN CR [Suspect]

REACTIONS (4)
  - ABNORMAL DREAMS [None]
  - AMNESIA [None]
  - BALANCE DISORDER [None]
  - SCREAMING [None]
